FAERS Safety Report 23058647 (Version 1)
Quarter: 2023Q4

REPORT INFORMATION
  Report Type: Spontaneous
  Country: CZ (occurrence: CZ)
  Receive Date: 20231012
  Receipt Date: 20231012
  Transmission Date: 20240110
  Serious: Yes (Other)
  Sender: FDA-Public Use
  Company Number: None

PATIENT
  Age: 60 Year
  Sex: Female
  Weight: 98 kg

DRUGS (8)
  1. CAPECITABINE [Suspect]
     Active Substance: CAPECITABINE
     Indication: Breast cancer
     Dosage: 2 WEEKS SCHEME - ON WEEK 1 3-0-3, ON WEEK 2 NO ADMINISTRATION
     Dates: start: 20230713, end: 20230719
  2. IBANDRONATE SODIUM [Suspect]
     Active Substance: IBANDRONATE SODIUM
     Indication: Breast cancer
     Dosage: 1 TABLET IN THE MORNING
     Dates: start: 20230124
  3. DEXAMETHASONE [Suspect]
     Active Substance: DEXAMETHASONE
     Indication: Metastases to central nervous system
     Dosage: 0.25 TABLET IN THE MORNING
  4. EUTHYROX [Concomitant]
     Active Substance: LEVOTHYROXINE SODIUM
     Dosage: 1-0-0 FROM MONDAY TO FRIDAY
  5. RHEFLUIN [Concomitant]
     Dosage: 1-0-0
  6. TRAZODONE HYDROCHLORIDE [Concomitant]
     Active Substance: TRAZODONE HYDROCHLORIDE
     Dosage: 2/3 OF A TABLET EVERY EVENING
  7. OMEPRAZOLE [Concomitant]
     Active Substance: OMEPRAZOLE
     Dosage: 1-1-0
  8. CAPECITABINE [Suspect]
     Active Substance: CAPECITABINE
     Indication: Breast cancer
     Dosage: 2 WEEKS SCHEME - ON WEEK 1 3-0-3, ON WEEK 2 NO ADMINISTRATION
     Dates: start: 20230124, end: 20230619

REACTIONS (6)
  - Oral candidiasis [Recovering/Resolving]
  - Oesophageal pain [Recovering/Resolving]
  - Dysphagia [Recovering/Resolving]
  - Tongue coated [Recovering/Resolving]
  - Gastritis [Recovering/Resolving]
  - Oesophagitis [Recovering/Resolving]

NARRATIVE: CASE EVENT DATE: 20230619
